FAERS Safety Report 18223546 (Version 1)
Quarter: 2020Q3

REPORT INFORMATION
  Report Type: Spontaneous
  Country: CN (occurrence: CN)
  Receive Date: 20200902
  Receipt Date: 20200902
  Transmission Date: 20201103
  Serious: Yes (Hospitalization, Other)
  Sender: FDA-Public Use
  Company Number: CN-PFIZER INC-2020336790

PATIENT
  Age: 66 Year
  Sex: Male

DRUGS (2)
  1. XALKORI [Suspect]
     Active Substance: CRIZOTINIB
     Indication: LUNG NEOPLASM MALIGNANT
     Dosage: 250 MG, 2X/DAY
     Route: 048
     Dates: start: 201903, end: 20200831
  2. METFORMIN [Concomitant]
     Active Substance: METFORMIN HYDROCHLORIDE
     Indication: DIABETES MELLITUS
     Dosage: 850 MG, 2X/DAY

REACTIONS (15)
  - Oesophageal ulcer [Unknown]
  - Nausea [Recovering/Resolving]
  - Vomiting [Recovering/Resolving]
  - Erosive oesophagitis [Unknown]
  - Neutrophil count decreased [Unknown]
  - Cough [Unknown]
  - Gastrointestinal ulcer [Unknown]
  - Musculoskeletal chest pain [Unknown]
  - Oesophageal disorder [Unknown]
  - Necrotising oesophagitis [Unknown]
  - Gastritis [Unknown]
  - Feeding disorder [Recovering/Resolving]
  - Oesophageal oedema [Unknown]
  - White blood cell count decreased [Unknown]
  - Sinus bradycardia [Unknown]

NARRATIVE: CASE EVENT DATE: 2019
